FAERS Safety Report 5081590-5 (Version None)
Quarter: 2006Q3

REPORT INFORMATION
  Report Type: 
  Country: None (occurrence: None)
  Receive Date: 20060810
  Receipt Date: 20060731
  Transmission Date: 20061208
  Serious: Yes (Other)
  Sender: FDA-Public Use
  Company Number: 2006095595

PATIENT
  Age: 16 Year
  Sex: Female

DRUGS (2)
  1. ATARAX [Suspect]
     Indication: ANAESTHETIC PREMEDICATION
     Dosage: INTRAVENOUS
     Route: 042
  2. ATROPINE SULFATE [Suspect]
     Indication: ANAESTHETIC PREMEDICATION
     Dosage: INTRAVENOUS
     Route: 042

REACTIONS (1)
  - INJECTION SITE ULCER [None]
